FAERS Safety Report 8093254-4 (Version None)
Quarter: 2012Q1

REPORT INFORMATION
  Report Type: 
  Country: None (occurrence: None)
  Receive Date: 20120128
  Receipt Date: 20110912
  Transmission Date: 20120608
  Serious: No
  Sender: FDA-Public Use
  Company Number: US-ABBOTT-11P-163-0724667-00

PATIENT
  Sex: Male
  Weight: 79.45 kg

DRUGS (11)
  1. CRESTOR [Concomitant]
     Indication: BLOOD CHOLESTEROL INCREASED
  2. ROPINIROLE [Concomitant]
     Indication: RESTLESS LEGS SYNDROME
  3. FLUTICASONE PROPIONATE [Concomitant]
     Indication: HYPERSENSITIVITY
  4. RAPAFLO [Concomitant]
     Indication: BENIGN PROSTATIC HYPERPLASIA
  5. TRIMETHOPRIM [Concomitant]
     Indication: BENIGN PROSTATIC HYPERPLASIA
  6. HUMIRA [Suspect]
     Indication: CROHN'S DISEASE
     Route: 058
     Dates: start: 20090901
  7. AVODART [Concomitant]
     Indication: BENIGN PROSTATIC HYPERPLASIA
  8. PROAIR HFA [Concomitant]
     Indication: ASTHMA
  9. MULTAQ [Concomitant]
     Indication: ATRIAL FIBRILLATION
  10. ADVAIR DISKUS 100/50 [Concomitant]
     Indication: ASTHMA
  11. IMURAN [Concomitant]
     Indication: CROHN'S DISEASE

REACTIONS (5)
  - PROSTATITIS [None]
  - BACK PAIN [None]
  - PROSTATOMEGALY [None]
  - URETHRITIS NONINFECTIVE [None]
  - POLLAKIURIA [None]
